FAERS Safety Report 22603112 (Version 5)
Quarter: 2023Q4

REPORT INFORMATION
  Report Type: Report from Study
  Country: CA (occurrence: CA)
  Receive Date: 20230615
  Receipt Date: 20231108
  Transmission Date: 20240110
  Serious: Yes (Hospitalization, Other)
  Sender: FDA-Public Use
  Company Number: CA-ABBVIE-5290822

PATIENT
  Sex: Female

DRUGS (3)
  1. BOTOX [Suspect]
     Active Substance: ONABOTULINUMTOXINA
     Indication: Migraine
     Dosage: TIME INTERVAL: AS NECESSARY
     Route: 030
     Dates: start: 20221122, end: 20221122
  2. BOTOX [Suspect]
     Active Substance: ONABOTULINUMTOXINA
     Indication: Migraine
     Dosage: TIME INTERVAL: AS NECESSARY
     Route: 065
     Dates: start: 20230606, end: 20230606
  3. TYLENOL EXTRA STRENGTH [Concomitant]
     Active Substance: ACETAMINOPHEN
     Indication: Product used for unknown indication

REACTIONS (11)
  - Rectal prolapse [Unknown]
  - Feeding disorder [Unknown]
  - Tension headache [Unknown]
  - Migraine [Unknown]
  - Nausea [Not Recovered/Not Resolved]
  - Mobility decreased [Unknown]
  - Pelvic organ prolapse [Recovering/Resolving]
  - Post procedural complication [Unknown]
  - Infection [Unknown]
  - Weight decreased [Unknown]
  - Cystocele [Unknown]

NARRATIVE: CASE EVENT DATE: 20230101
